FAERS Safety Report 7988721-5 (Version None)
Quarter: 2011Q4

REPORT INFORMATION
  Report Type: 
  Country: None (occurrence: None)
  Receive Date: 20111219
  Receipt Date: 20111209
  Transmission Date: 20120403
  Serious: Yes (Hospitalization)
  Sender: FDA-Public Use
  Company Number: FR-BRISTOL-MYERS SQUIBB COMPANY-16295966

PATIENT
  Age: 71 Year
  Sex: Female

DRUGS (15)
  1. CALCIDIA [Concomitant]
     Dosage: GRANULES FOR ORAL SUSPENSION
     Route: 048
  2. ASPIRIN [Concomitant]
     Dosage: POWDER FOR ORAL SOLUTION
     Route: 048
  3. CRESTOR [Concomitant]
     Dosage: 5MG TABS
  4. CORGARD [Concomitant]
     Dosage: 80MG TAB
  5. DEDROGYL [Concomitant]
     Dosage: 1 DF :0.15MG/ML,ORAL DROPS
     Route: 048
  6. RENVELA [Concomitant]
     Dosage: POWDER FOR ORAL SUSPENSION
     Route: 048
  7. LASIX [Concomitant]
     Dosage: LASILIX SPECIAL 500MG TABS
  8. XANAX [Concomitant]
     Dosage: 0.5MG TABS
  9. DAFALGAN CAPS 500 MG [Concomitant]
  10. ERBITUX [Suspect]
     Indication: LIP AND/OR ORAL CAVITY CANCER
     Dosage: 5 ADMINISTRATIONS,NO OF INJ: 6
     Route: 042
     Dates: start: 20110715, end: 20110812
  11. PLAVIX [Concomitant]
  12. LANSOPRAZOLE [Concomitant]
     Dosage: 30MG TABS
  13. ALLOPURINOL [Concomitant]
     Dosage: 100MG TABS
  14. AIROMIR [Concomitant]
     Dosage: AIROMIR AUTOHALER NASAL SPRAY,SUSPENSION
     Route: 045
  15. LERCANIDIPINE [Concomitant]
     Dosage: 10MG TABS

REACTIONS (2)
  - LEUKOCYTOCLASTIC VASCULITIS [None]
  - VASCULAR PURPURA [None]
